FAERS Safety Report 6080864-9 (Version None)
Quarter: 2009Q1

REPORT INFORMATION
  Report Type: 
  Country: None (occurrence: None)
  Receive Date: 20090217
  Receipt Date: 20090205
  Transmission Date: 20090719
  Serious: Yes (Death, Hospitalization)
  Sender: FDA-Public Use
  Company Number: US-PFIZER INC-2008076686

PATIENT
  Sex: Female
  Weight: 184 kg

DRUGS (11)
  1. SUNITINIB MALATE [Suspect]
     Indication: BREAST CANCER
     Dosage: 25 MG, 1X/DAY
     Route: 048
     Dates: start: 20080717, end: 20080911
  2. PACLITAXEL [Suspect]
     Indication: BREAST CANCER
     Dosage: 165 MG, WEEKLY FOR 3 WEEKS, 2WEEK REST
     Route: 042
     Dates: start: 20080717, end: 20080911
  3. NEUPOGEN [Suspect]
     Dosage: UNK
     Dates: start: 20080908, end: 20080909
  4. GLIMEPIRIDE [Concomitant]
     Dosage: 1 MG, 1X/DAY
     Route: 048
     Dates: start: 20010101
  5. ZOMETA [Concomitant]
     Dosage: 4 MG, UNK
     Dates: start: 20060524
  6. VITAMIN E [Concomitant]
     Dosage: 400 IU, 1X/DAY
  7. VITAMIN B6 [Concomitant]
  8. FENTANYL [Concomitant]
     Dosage: 75 MG, EVERY 72H
  9. LYRICA [Concomitant]
     Dosage: 75 MG, 3X/DAY
     Route: 048
  10. FEMARA [Concomitant]
     Dosage: 2.5 MG, UNK
     Route: 048
  11. MULTI-VITAMINS [Concomitant]
     Dosage: UNK
     Route: 048

REACTIONS (4)
  - CARDIOGENIC SHOCK [None]
  - MYOCARDIAL INFARCTION [None]
  - NEUTROPENIC SEPSIS [None]
  - PAIN [None]
